FAERS Safety Report 17892311 (Version 1)
Quarter: 2020Q2

REPORT INFORMATION
  Report Type: Spontaneous
  Country: US (occurrence: US)
  Receive Date: 20200612
  Receipt Date: 20200612
  Transmission Date: 20200714
  Serious: No
  Sender: FDA-Public Use
  Company Number: US-BIOHAVEN PHARMACEUTICALS-2020BHV00047

PATIENT
  Sex: Female

DRUGS (8)
  1. SERTRALINE [Concomitant]
     Active Substance: SERTRALINE HYDROCHLORIDE
  2. UNSPECIFIED NEBULIZED MEDICATION [Concomitant]
  3. EMGALITY [Concomitant]
     Active Substance: GALCANEZUMAB-GNLM
  4. ZYRTEC [Concomitant]
     Active Substance: CETIRIZINE HYDROCHLORIDE
     Dosage: UNK, AS NEEDED
  5. ^NONOBUMIPRON^ [Concomitant]
  6. XANAX [Concomitant]
     Active Substance: ALPRAZOLAM
  7. NURTEC ODT [Suspect]
     Active Substance: RIMEGEPANT SULFATE
  8. NAPROXEN. [Concomitant]
     Active Substance: NAPROXEN

REACTIONS (3)
  - Hangover [Unknown]
  - Dizziness [Unknown]
  - Somnolence [Unknown]
